FAERS Safety Report 8604456 (Version 3)
Quarter: 2013Q3

REPORT INFORMATION
  Report Type: Spontaneous
  Country: US (occurrence: US)
  Receive Date: 20120608
  Receipt Date: 20130903
  Transmission Date: 20140515
  Serious: Yes (Other)
  Sender: FDA-Public Use
  Company Number: US-PFIZER INC-2012135591

PATIENT
  Age: 59 Year
  Sex: Female
  Weight: 75 kg

DRUGS (9)
  1. GENOTROPIN MINIQUICK [Suspect]
     Indication: BLOOD GROWTH HORMONE ABNORMAL
     Dosage: 0.4 MG, 1X/DAY
     Dates: start: 201111, end: 201112
  2. GENOTROPIN MINIQUICK [Suspect]
     Dosage: 0.2 MG, 1X/DAY
     Dates: start: 201112
  3. GENOTROPIN MINIQUICK [Suspect]
     Dosage: 0.2 MG, (ONE TO TWO TIMES A WEEK)
     Dates: start: 201202
  4. GENOTROPIN [Suspect]
     Dosage: UNK
  5. BENICAR [Concomitant]
     Indication: HYPERTENSION
     Dosage: UNK
  6. LEVOTHYROXINE [Concomitant]
     Indication: HYPOTHYROIDISM
     Dosage: UNK
  7. LIOTHYRONINE [Concomitant]
     Indication: HYPOTHYROIDISM
     Dosage: UNK
  8. ESTROGENS [Concomitant]
     Dosage: UNK
  9. PROGESTERONE [Concomitant]
     Dosage: UNK

REACTIONS (5)
  - Cardiac disorder [Unknown]
  - Hypersensitivity [Unknown]
  - Throat tightness [Unknown]
  - Dysphagia [Unknown]
  - Jaw disorder [Unknown]
